FAERS Safety Report 13408213 (Version 2)
Quarter: 2017Q2

REPORT INFORMATION
  Report Type: Spontaneous
  Country: US (occurrence: US)
  Receive Date: 20170406
  Receipt Date: 20170524
  Transmission Date: 20170830
  Serious: Yes (Other)
  Sender: FDA-Public Use
  Company Number: US-009507513-1703USA014403

PATIENT
  Age: 63 Year
  Sex: Male

DRUGS (3)
  1. CARBIDOPA (+) LEVODOPA [Suspect]
     Active Substance: CARBIDOPA\LEVODOPA
     Dosage: 1 PILL (25/100 MG) 2 TIMES A DAY
     Route: 048
     Dates: start: 201406
  2. MK-0000 [Suspect]
     Active Substance: INVESTIGATIONAL PRODUCT
     Dosage: 1 PILL (25/100 MG) 2 TIMES A DAY
     Route: 048
     Dates: start: 201406
  3. ARMODAFINIL. [Concomitant]
     Active Substance: ARMODAFINIL
     Dosage: UNK

REACTIONS (12)
  - Transurethral prostatectomy [Not Recovered/Not Resolved]
  - Nervous system disorder [Not Recovered/Not Resolved]
  - Tremor [Not Recovered/Not Resolved]
  - Drug effect decreased [Not Recovered/Not Resolved]
  - Chronic lymphocytic leukaemia stage 0 [Not Recovered/Not Resolved]
  - General physical health deterioration [Not Recovered/Not Resolved]
  - White blood cell count abnormal [Not Recovered/Not Resolved]
  - Musculoskeletal stiffness [Not Recovered/Not Resolved]
  - Drug prescribing error [Unknown]
  - Product use issue [Unknown]
  - Muscle spasms [Not Recovered/Not Resolved]
  - Facial bones fracture [Not Recovered/Not Resolved]

NARRATIVE: CASE EVENT DATE: 2014
